FAERS Safety Report 9013545 (Version 1)
Quarter: 2013Q1

REPORT INFORMATION
  Report Type: Spontaneous
  Country: US (occurrence: None)
  Receive Date: 20130107
  Receipt Date: 20130107
  Transmission Date: 20140127
  Serious: Yes (Other)
  Sender: FDA-Public Use
  Company Number: None

PATIENT
  Age: 53 Year
  Sex: Female
  Weight: 42.8 kg

DRUGS (3)
  1. ABRAXANE [Suspect]
  2. CARBOPLATIN [Suspect]
  3. HERCEPTIN [Suspect]

REACTIONS (3)
  - Ejection fraction decreased [None]
  - Stress echocardiogram abnormal [None]
  - Dyspnoea [None]
